FAERS Safety Report 20424586 (Version 1)
Quarter: 2022Q1

REPORT INFORMATION
  Report Type: Report from Study
  Country: US (occurrence: US)
  Receive Date: 20220203
  Receipt Date: 20220203
  Transmission Date: 20220423
  Serious: No
  Sender: FDA-Public Use
  Company Number: US-EXELIXIS-CABO-20035785

PATIENT
  Age: 60 Year
  Sex: Male

DRUGS (2)
  1. CABOMETYX [Suspect]
     Active Substance: CABOZANTINIB S-MALATE
     Indication: Renal cancer
     Dosage: 60 MG, QD
     Route: 048
     Dates: start: 202004
  2. CABOMETYX [Suspect]
     Active Substance: CABOZANTINIB S-MALATE
     Dosage: 60 MG, QOD
     Route: 048
     Dates: start: 202101

REACTIONS (11)
  - Contusion [Unknown]
  - Skin exfoliation [Not Recovered/Not Resolved]
  - Hyperkeratosis [Unknown]
  - Pigmentation disorder [Unknown]
  - Back pain [Unknown]
  - Skin ulcer [Unknown]
  - Hair colour changes [Unknown]
  - Pain in extremity [Unknown]
  - Decreased appetite [Recovering/Resolving]
  - Arthralgia [Unknown]
  - Inappropriate schedule of product administration [Unknown]

NARRATIVE: CASE EVENT DATE: 20210101
